FAERS Safety Report 5946709-X (Version None)
Quarter: 2008Q4

REPORT INFORMATION
  Report Type: 
  Country: None (occurrence: None)
  Receive Date: 20081110
  Receipt Date: 20080926
  Transmission Date: 20090506
  Serious: No
  Sender: FDA-Public Use
  Company Number: A0749458A

PATIENT
  Sex: Female

DRUGS (1)
  1. ALTABAX [Suspect]
     Dosage: 1APP TWICE PER DAY
     Route: 061
     Dates: start: 20080801, end: 20080801

REACTIONS (1)
  - DRUG INEFFECTIVE [None]
